FAERS Safety Report 9631769 (Version 1)
Quarter: 2013Q4

REPORT INFORMATION
  Report Type: Spontaneous
  Country: US (occurrence: None)
  Receive Date: 20131017
  Receipt Date: 20131017
  Transmission Date: 20140711
  Serious: No
  Sender: FDA-Public Use
  Company Number: None

PATIENT
  Sex: Female

DRUGS (3)
  1. ARIMIDEX [Suspect]
     Route: 048
     Dates: start: 201305
  2. LOSARTAN [Concomitant]
  3. VITAMIN D3 [Concomitant]

REACTIONS (5)
  - Fatigue [None]
  - Hyperhidrosis [None]
  - Myalgia [None]
  - Arthralgia [None]
  - Headache [None]
